FAERS Safety Report 9255915 (Version 1)
Quarter: 2013Q2

REPORT INFORMATION
  Report Type: Spontaneous
  Country: CA (occurrence: CA)
  Receive Date: 20130425
  Receipt Date: 20130425
  Transmission Date: 20140414
  Serious: Yes (Death, Hospitalization)
  Sender: FDA-Public Use
  Company Number: CA-B.I. PHARMACEUTICALS,INC./RIDGEFIELD-2013-CN-00706CN

PATIENT
  Age: 87 Year
  Sex: Female

DRUGS (5)
  1. PRADAXA [Suspect]
     Indication: ATRIAL FIBRILLATION
     Dosage: 220 MG
     Dates: start: 201208, end: 201302
  2. WELLBUTRIN [Concomitant]
  3. SYNTHROID [Concomitant]
  4. ALDACTONE [Concomitant]
  5. CARVEDILOL [Concomitant]

REACTIONS (4)
  - Sepsis [Fatal]
  - Psoas abscess [Unknown]
  - Muscle haemorrhage [Unknown]
  - Pneumonia [Unknown]
